FAERS Safety Report 7755061-9 (Version None)
Quarter: 2011Q3

REPORT INFORMATION
  Report Type: 
  Country: None (occurrence: None)
  Receive Date: 20110916
  Receipt Date: 20110801
  Transmission Date: 20111222
  Serious: No
  Sender: FDA-Public Use
  Company Number: US-BAYER-2011-070863

PATIENT

DRUGS (3)
  1. ACETAMINOPHEN [Concomitant]
  2. LEUKINE [Suspect]
     Indication: PRODUCT USED FOR UNKNOWN INDICATION
  3. BENADRYL [Concomitant]

REACTIONS (2)
  - CHILLS [None]
  - VOMITING [None]
